FAERS Safety Report 4740145-X (Version None)
Quarter: 2005Q3

REPORT INFORMATION
  Report Type: 
  Country: None (occurrence: None)
  Receive Date: 20050810
  Receipt Date: 20050203
  Transmission Date: 20060218
  Serious: No
  Sender: FDA-Public Use
  Company Number: US-GLAXOSMITHKLINE-A0543704A

PATIENT
  Age: 79 Year
  Sex: Female

DRUGS (7)
  1. PAXIL [Suspect]
     Indication: DEPRESSION
     Dosage: 20MG PER DAY
     Route: 048
     Dates: start: 20050118
  2. MARINOL [Concomitant]
  3. ZYRTEC [Concomitant]
  4. THYROID TAB [Concomitant]
  5. ATIVAN [Concomitant]
  6. CHEMOTHERAPY [Concomitant]
  7. DYAZIDE [Concomitant]

REACTIONS (2)
  - ANOREXIA [None]
  - DIZZINESS [None]
